FAERS Safety Report 13257388 (Version 1)
Quarter: 2017Q1

REPORT INFORMATION
  Report Type: Spontaneous
  Country: JP (occurrence: JP)
  Receive Date: 20170221
  Receipt Date: 20170221
  Transmission Date: 20170428
  Serious: Yes (Death, Life-Threatening, Hospitalization, Disabling)
  Sender: FDA-Public Use
  Company Number: JP-GE HEALTHCARE LIFE SCIENCES-OMPQ-NO-1108S-0818

PATIENT

DRUGS (14)
  1. GASTER [Concomitant]
     Active Substance: FAMOTIDINE
  2. HERBAL NOS [Concomitant]
     Active Substance: HERBALS
     Dosage: ,
     Dates: start: 200904, end: 20110812
  3. PULMICORT TURBUHALER [Concomitant]
     Active Substance: BUDESONIDE
     Dosage: ,
     Dates: start: 200909, end: 20110812
  4. METFORMIN HYDROCHLORIDE. [Concomitant]
     Active Substance: METFORMIN HYDROCHLORIDE
     Dosage: ,
  5. SMALLPOX VACCINE (NEUROTROPIN) [Concomitant]
     Dosage: ,
     Dates: start: 200904, end: 20110812
  6. ONON [Concomitant]
     Active Substance: PRANLUKAST
     Dosage: ,
     Dates: start: 200909, end: 20110812
  7. CYANOCOBALAMIN. [Concomitant]
     Active Substance: CYANOCOBALAMIN
     Dosage: ,
     Dates: start: 200904, end: 20090812
  8. UNIPHYL [Concomitant]
     Active Substance: THEOPHYLLINE ANHYDROUS
     Dosage: ,
     Dates: start: 200909, end: 20110812
  9. SOLON [Concomitant]
     Active Substance: SOFALCONE
  10. COLONEL [Concomitant]
     Active Substance: CALCIUM POLYCARBOPHIL
  11. JANUVIA [Concomitant]
     Active Substance: SITAGLIPTIN PHOSPHATE
  12. HOKUNALIN [Concomitant]
     Active Substance: TULOBUTEROL
     Dosage: ,
     Dates: start: 200909, end: 20110812
  13. OMNIPAQUE [Suspect]
     Active Substance: IOHEXOL
     Indication: ABDOMINAL PAIN
     Dosage: 150 ML, SINGLE
     Route: 042
     Dates: start: 20110812, end: 20110812
  14. AMLODIPINE BESILATE [Concomitant]
     Active Substance: AMLODIPINE BESYLATE

REACTIONS (6)
  - Seizure [Recovered/Resolved]
  - Ventricular fibrillation [Recovered/Resolved]
  - Encephalopathy [Recovered/Resolved]
  - Pneumonia [Fatal]
  - Anaphylactoid shock [Recovered/Resolved]
  - Cardio-respiratory arrest [Recovered/Resolved]

NARRATIVE: CASE EVENT DATE: 201108
